FAERS Safety Report 14170601 (Version 3)
Quarter: 2018Q3

REPORT INFORMATION
  Report Type: Spontaneous
  Country: US (occurrence: US)
  Receive Date: 20171108
  Receipt Date: 20180913
  Transmission Date: 20181010
  Serious: Yes (Death)
  Sender: FDA-Public Use
  Company Number: US-PFIZER INC-2017475153

PATIENT
  Age: 33 Year
  Sex: Female

DRUGS (13)
  1. CYTARABINE. [Concomitant]
     Active Substance: CYTARABINE
     Indication: ACUTE MYELOID LEUKAEMIA
     Dosage: UNK UNK, CYCLIC (HIGH?DOSE)
     Dates: start: 1995
  2. IDARUBICIN [Concomitant]
     Active Substance: IDARUBICIN
     Indication: CHEMOTHERAPY
  3. CYCLOPHOSPHAMIDE. [Concomitant]
     Active Substance: CYCLOPHOSPHAMIDE
     Indication: BONE MARROW CONDITIONING REGIMEN
     Dosage: 60 MG/KG, 2X/DAY
     Dates: start: 1996
  4. CEFTAZIDIME. [Suspect]
     Active Substance: CEFTAZIDIME
     Indication: ENTEROCOCCAL INFECTION
     Dosage: UNK
     Dates: start: 1996
  5. AMPHOTERICIN [Suspect]
     Active Substance: AMPHOTERICIN B
     Indication: ENTEROCOCCAL INFECTION
     Dosage: UNK
     Dates: start: 1996
  6. IDARUBICIN [Concomitant]
     Active Substance: IDARUBICIN
     Indication: ACUTE MYELOID LEUKAEMIA
     Dosage: UNK UNK, CYCLIC
     Dates: start: 1996
  7. CHLORAMPHENICOL [Suspect]
     Active Substance: CHLORAMPHENICOL
     Indication: ENTEROCOCCAL INFECTION
     Dosage: UNK
     Dates: start: 1996
  8. SYNERCID [Suspect]
     Active Substance: DALFOPRISTIN\QUINUPRISTIN
     Indication: ENTEROCOCCAL INFECTION
     Dosage: UNK
  9. VANCOMYCIN [Concomitant]
     Active Substance: VANCOMYCIN
     Indication: ANTIBIOTIC THERAPY
     Dosage: UNK
     Dates: start: 1996
  10. CYTARABINE. [Concomitant]
     Active Substance: CYTARABINE
     Indication: CHEMOTHERAPY
     Dosage: UNK, CYCLIC
     Dates: start: 1996
  11. TOBRAMYCIN. [Suspect]
     Active Substance: TOBRAMYCIN
     Indication: ENTEROCOCCAL INFECTION
     Dosage: UNK
     Dates: start: 1996
  12. CYCLOSPORINE A [Concomitant]
     Active Substance: CYCLOSPORINE
     Indication: GRAFT VERSUS HOST DISEASE
     Dosage: UNK (CONTINUOUS INFUSION)
     Dates: start: 1996
  13. METHOTREXATE. [Concomitant]
     Active Substance: METHOTREXATE
     Indication: GRAFT VERSUS HOST DISEASE
     Dosage: UNK (PULSE DOSE)
     Dates: start: 1996

REACTIONS (1)
  - Drug ineffective for unapproved indication [Fatal]
